FAERS Safety Report 5397188-5 (Version None)
Quarter: 2007Q3

REPORT INFORMATION
  Report Type: 
  Country: None (occurrence: None)
  Receive Date: 20070723
  Receipt Date: 20070713
  Transmission Date: 20080115
  Serious: Yes (Other)
  Sender: FDA-Public Use
  Company Number: 2007326690

PATIENT
  Age: 16 Year
  Sex: Female

DRUGS (1)
  1. SUDAFED 12 HOUR [Suspect]
     Indication: NASAL CONGESTION
     Dosage: ONE CAPLET TWICE,ORAL
     Route: 048
     Dates: start: 20070712, end: 20070713

REACTIONS (1)
  - RESPIRATORY DISORDER [None]
